FAERS Safety Report 23153345 (Version 3)
Quarter: 2023Q4

REPORT INFORMATION
  Report Type: Spontaneous
  Country: US (occurrence: US)
  Receive Date: 20231107
  Receipt Date: 20231115
  Transmission Date: 20240110
  Serious: No
  Sender: FDA-Public Use
  Company Number: US-OPELLA-2023OHG011869

PATIENT
  Sex: Female

DRUGS (1)
  1. ACT RESTORING ANTICAVITY FLUORIDE MINT BURST [Suspect]
     Active Substance: SODIUM FLUORIDE
     Indication: Product used for unknown indication
     Route: 048

REACTIONS (1)
  - Oral discomfort [Unknown]
